FAERS Safety Report 4295409-3 (Version None)
Quarter: 2004Q1

REPORT INFORMATION
  Report Type: 
  Country: None (occurrence: None)
  Receive Date: 20040216
  Receipt Date: 20030718
  Transmission Date: 20041129
  Serious: No
  Sender: FDA-Public Use
  Company Number: US-GLAXOSMITHKLINE-A0418085A

PATIENT
  Age: 19 Year
  Sex: Female

DRUGS (4)
  1. LAMICTAL [Suspect]
     Indication: BIPOLAR DISORDER
     Dosage: 25MG AT NIGHT
     Route: 048
     Dates: start: 20030709, end: 20030718
  2. QUETIAPINE [Concomitant]
  3. CLONAZEPAM [Concomitant]
  4. TRILEPTAL [Concomitant]

REACTIONS (1)
  - RASH PUSTULAR [None]
